FAERS Safety Report 8323038-0 (Version None)
Quarter: 2012Q2

REPORT INFORMATION
  Report Type: 
  Country: None (occurrence: None)
  Receive Date: 20120430
  Receipt Date: 20120425
  Transmission Date: 20120825
  Serious: No
  Sender: FDA-Public Use
  Company Number: US-PFIZER INC-2012070372

PATIENT
  Age: 15 Month
  Sex: Male
  Weight: 10.884 kg

DRUGS (2)
  1. CHILDREN'S ADVIL [Suspect]
     Indication: EAR INFECTION
  2. CHILDREN'S ADVIL [Suspect]
     Indication: PYREXIA
     Dosage: UNK, DAILY
     Route: 048
     Dates: start: 20120311, end: 20120313

REACTIONS (4)
  - PSYCHOMOTOR HYPERACTIVITY [None]
  - IRRITABILITY [None]
  - INSOMNIA [None]
  - AGITATION [None]
